FAERS Safety Report 17085091 (Version 5)
Quarter: 2020Q1

REPORT INFORMATION
  Report Type: Report from Study
  Country: US (occurrence: US)
  Receive Date: 20191127
  Receipt Date: 20200320
  Transmission Date: 20200409
  Serious: Yes (Hospitalization)
  Sender: FDA-Public Use
  Company Number: NVSC2019US050016

PATIENT
  Age: 5 Year
  Sex: Male

DRUGS (5)
  1. FLUDARABINE [Concomitant]
     Active Substance: FLUDARABINE PHOSPHATE
     Indication: CHEMOTHERAPY
     Route: 065
  2. KYMRIAH [Suspect]
     Active Substance: TISAGENLECLEUCEL
     Dosage: 2 X 10E6 (2.5 X 10E8) 23 ML EACH BAG X 2
     Route: 042
     Dates: start: 20190910
  3. CYCLOPHOSPHAMIDE. [Concomitant]
     Active Substance: CYCLOPHOSPHAMIDE
     Indication: CHEMOTHERAPY
     Route: 065
  4. KYMRIAH [Suspect]
     Active Substance: TISAGENLECLEUCEL
     Indication: ACUTE LYMPHOCYTIC LEUKAEMIA
     Route: 042
  5. TRIMETHOPRIM SULFAMETHOXAZOLE [Concomitant]
     Active Substance: SULFAMETHOXAZOLE\TRIMETHOPRIM
     Indication: PROPHYLAXIS
     Dosage: TAKE 5 ML/ 40 MG (40/200 MG/ 5ML SUSPENSION) (40 MG BID ON SATURDAY AND SUNDAY)
     Route: 048
     Dates: start: 20190904

REACTIONS (9)
  - Respiratory syncytial virus infection [Unknown]
  - Corona virus infection [Unknown]
  - Vomiting [Recovered/Resolved]
  - Cough [Unknown]
  - Treatment failure [Unknown]
  - Nasal congestion [Unknown]
  - Hypophagia [Recovering/Resolving]
  - Retching [Unknown]
  - Fatigue [Unknown]

NARRATIVE: CASE EVENT DATE: 20191121
